FAERS Safety Report 20528233 (Version 1)
Quarter: 2022Q1

REPORT INFORMATION
  Report Type: Spontaneous
  Country: US (occurrence: US)
  Receive Date: 20220228
  Receipt Date: 20220228
  Transmission Date: 20220423
  Serious: Yes (Other)
  Sender: FDA-Public Use
  Company Number: US-NOVARTISPH-NVSC2022US047345

PATIENT
  Age: 50 Year
  Sex: Male

DRUGS (2)
  1. RANITIDINE [Suspect]
     Active Substance: RANITIDINE
     Indication: Dyspepsia
     Dosage: OTHER,75MG AND 150MG,OTHER,1-2 TIMES DAILY AS NEEDED ( STOPPED USING IN 2001 TO PREVACID
     Route: 048
     Dates: start: 199201, end: 202001
  2. RANITIDINE [Suspect]
     Active Substance: RANITIDINE
     Indication: Dyspepsia
     Dosage: OTHER,75MG AND 150MG,OTHER,1-2 TIMES DAILY AS NEEDED ( STOPPED USING IN 2001 TO PREVACID
     Route: 048
     Dates: start: 199201, end: 202001

REACTIONS (2)
  - Oesophageal carcinoma [Unknown]
  - Incorrect dose administered [Unknown]

NARRATIVE: CASE EVENT DATE: 20111101
